FAERS Safety Report 18939994 (Version 1)
Quarter: 2021Q1

REPORT INFORMATION
  Report Type: Spontaneous
  Country: CH (occurrence: CH)
  Receive Date: 20210225
  Receipt Date: 20210225
  Transmission Date: 20210420
  Serious: Yes (Hospitalization, Other)
  Sender: FDA-Public Use
  Company Number: CH-TEVA-2021-CH-1883731

PATIENT
  Age: 86 Year
  Sex: Male
  Weight: 69 kg

DRUGS (14)
  1. NEBIVOLOL. [Concomitant]
     Active Substance: NEBIVOLOL
     Route: 048
  2. ACETYLCYSTEIN [Concomitant]
     Active Substance: ACETYLCYSTEINE
     Route: 048
     Dates: end: 202102
  3. CALCIMAGON [Concomitant]
     Active Substance: CALCIUM
     Route: 048
  4. SPIRIVA [Concomitant]
     Active Substance: TIOTROPIUM BROMIDE MONOHYDRATE
     Route: 055
  5. TOREM [Suspect]
     Active Substance: TORSEMIDE
     Route: 048
     Dates: end: 20210127
  6. ACIDUM FOLICUM [Concomitant]
     Active Substance: FOLIC ACID
     Route: 048
     Dates: end: 202102
  7. PANTOPRAZOLE [Suspect]
     Active Substance: PANTOPRAZOLE
     Route: 048
     Dates: end: 20210127
  8. IRFEN [Suspect]
     Active Substance: IBUPROFEN
     Dosage: AS REQUIRED
     Route: 048
     Dates: end: 20210127
  9. KEYTRUDA [Suspect]
     Active Substance: PEMBROLIZUMAB
     Indication: METASTATIC MALIGNANT MELANOMA
     Dosage: CYCLICAL
     Route: 042
     Dates: start: 20200730, end: 20210104
  10. ELIQUIS [Suspect]
     Active Substance: APIXABAN
     Indication: ATRIAL FIBRILLATION
     Route: 048
     Dates: end: 20210127
  11. ZYLORIC [Suspect]
     Active Substance: ALLOPURINOL
     Route: 048
     Dates: end: 20210127
  12. VANNAIR [Concomitant]
     Active Substance: BUDESONIDE\FORMOTEROL FUMARATE DIHYDRATE
     Route: 055
  13. HARPAGOMED [Suspect]
     Active Substance: HARPAGOPHYTUM PROCUMBENS ROOT\HERBALS
     Route: 048
     Dates: end: 20210127
  14. MAGNESIOCARD [Concomitant]
     Active Substance: MAGNESIUM ASPARTATE HYDROCHLORIDE
     Route: 048
     Dates: end: 202102

REACTIONS (3)
  - Autoimmune hepatitis [Recovering/Resolving]
  - Drug-induced liver injury [Recovering/Resolving]
  - Jaundice [Recovering/Resolving]

NARRATIVE: CASE EVENT DATE: 20210124
